FAERS Safety Report 25817554 (Version 1)
Quarter: 2025Q3

REPORT INFORMATION
  Report Type: Spontaneous
  Country: EU (occurrence: EU)
  Receive Date: 20250918
  Receipt Date: 20250918
  Transmission Date: 20251020
  Serious: Yes (Life-Threatening)
  Sender: MERCK SHARP & DOHME LLC
  Company Number: None

PATIENT
  Age: 75 Year
  Sex: Female
  Weight: 70 kg

DRUGS (9)
  1. BRIDION [Suspect]
     Active Substance: SUGAMMADEX SODIUM
     Indication: Reversal of sedation
     Route: 042
     Dates: start: 20250827, end: 20250827
  2. SPIRAMYCIN [Concomitant]
     Active Substance: SPIRAMYCIN
     Indication: Sepsis
     Route: 042
     Dates: start: 20250823, end: 20250823
  3. NEFOPAM HYDROCHLORIDE [Concomitant]
     Active Substance: NEFOPAM HYDROCHLORIDE
     Indication: Arthritis infective
     Route: 042
     Dates: start: 20250823, end: 20250828
  4. CEFTRIAXONE [Concomitant]
     Active Substance: CEFTRIAXONE
     Indication: Sepsis
     Route: 042
     Dates: start: 20250823, end: 20250823
  5. CLINDAMYCIN [Concomitant]
     Active Substance: CLINDAMYCIN
     Indication: Arthritis infective
     Dosage: 600 MG *3/DAY
     Route: 042
     Dates: start: 20250824, end: 20250828
  6. NOREPINEPHRINE BITARTRATE [Concomitant]
     Active Substance: NOREPINEPHRINE BITARTRATE
     Indication: Hypotension
     Route: 042
     Dates: start: 20250823
  7. AMIKACIN [Concomitant]
     Active Substance: AMIKACIN
     Indication: Sepsis
     Route: 042
     Dates: start: 20250823, end: 20250823
  8. PROPOFOL [Concomitant]
     Active Substance: PROPOFOL
     Indication: Anaesthesia
     Route: 042
     Dates: start: 20250827, end: 20250827
  9. AMOXICILLIN [Concomitant]
     Active Substance: AMOXICILLIN
     Indication: Arthritis infective
     Dosage: 2G*4/DAY
     Route: 042
     Dates: start: 20250824, end: 20250828

REACTIONS (1)
  - Bronchospasm [Recovered/Resolved]

NARRATIVE: CASE EVENT DATE: 20250827
